FAERS Safety Report 5499949-0 (Version None)
Quarter: 2007Q4

REPORT INFORMATION
  Report Type: 
  Country: None (occurrence: None)
  Receive Date: 20071026
  Receipt Date: 20071016
  Transmission Date: 20080405
  Serious: Yes (Other)
  Sender: FDA-Public Use
  Company Number: GB-PFIZER INC-2007089166

PATIENT
  Age: 22 Year
  Sex: Female

DRUGS (2)
  1. LUSTRAL [Suspect]
     Indication: DEPRESSED MOOD
     Route: 048
  2. CLOZARIL [Suspect]
     Indication: SCHIZOPHRENIA
     Route: 048
     Dates: start: 20020122, end: 20020801

REACTIONS (3)
  - PETECHIAE [None]
  - SKIN STRIAE [None]
  - WEIGHT INCREASED [None]
